FAERS Safety Report 26078818 (Version 1)
Quarter: 2025Q4

REPORT INFORMATION
  Report Type: Spontaneous
  Country: US (occurrence: US)
  Receive Date: 20251123
  Receipt Date: 20251123
  Transmission Date: 20260117
  Serious: No
  Sender: GALPHARM INTERNATIONAL
  Company Number: US-PERRIGO-25US001718

PATIENT
  Age: 33 Year
  Sex: Female
  Weight: 45.351 kg

DRUGS (1)
  1. OPILL [Suspect]
     Active Substance: NORGESTREL
     Indication: Product used for unknown indication
     Dosage: UNKNOWN, QD
     Route: 048
     Dates: start: 202408

REACTIONS (6)
  - Hypomenorrhoea [Recovered/Resolved]
  - Menstruation delayed [Recovered/Resolved]
  - Menstrual disorder [Unknown]
  - Polymenorrhoea [Unknown]
  - Heavy menstrual bleeding [Unknown]
  - Dysmenorrhoea [Unknown]

NARRATIVE: CASE EVENT DATE: 20240101
